FAERS Safety Report 7177145-9 (Version None)
Quarter: 2010Q4

REPORT INFORMATION
  Report Type: 
  Country: None (occurrence: None)
  Receive Date: 20101220
  Receipt Date: 20101210
  Transmission Date: 20110411
  Serious: Yes (Other)
  Sender: FDA-Public Use
  Company Number: US-PFIZER INC-2010170262

PATIENT
  Sex: Female
  Weight: 96.161 kg

DRUGS (8)
  1. DETROL LA [Suspect]
     Indication: HYPERTONIC BLADDER
     Dosage: 4 MG, 1X/DAY
     Dates: start: 20030101
  2. EFFEXOR [Concomitant]
     Dosage: 300 MG, UNK
  3. ABILIFY [Concomitant]
     Dosage: 5 MG, UNK
  4. UNIVASC [Concomitant]
     Dosage: UNIT DOSE: 7.5
  5. HYDROXYZINE [Concomitant]
     Dosage: 25 MG AT NIGHT
  6. RESTORIL [Concomitant]
     Dosage: 30 MG, UNK
  7. XANAX [Concomitant]
     Dosage: UNK
  8. LOVAZA [Concomitant]
     Dosage: 2 CAPSULES TWICE DAILY

REACTIONS (2)
  - HYPERTONIC BLADDER [None]
  - URINARY TRACT INFECTION [None]
